FAERS Safety Report 9847362 (Version 3)
Quarter: 2014Q1

REPORT INFORMATION
  Report Type: Spontaneous
  Country: DK (occurrence: JP)
  Receive Date: 20140127
  Receipt Date: 20140303
  Transmission Date: 20141002
  Serious: Yes (Other)
  Sender: FDA-Public Use
  Company Number: JP-FRI-1000053113

PATIENT
  Age: 55 Year
  Sex: Male

DRUGS (9)
  1. LEXAPRO [Suspect]
     Indication: DEPRESSION
     Dosage: 10 MG
     Route: 048
     Dates: start: 20120106, end: 20120119
  2. LEXAPRO [Suspect]
     Dosage: 20 MG
     Route: 048
     Dates: start: 20120120, end: 20131022
  3. LEXAPRO [Suspect]
     Indication: DEPRESSION
     Dosage: 10 MG
     Route: 048
     Dates: start: 20131023, end: 20131225
  4. PAXIL [Concomitant]
     Indication: DEPRESSION
     Dosage: 10 MG
     Route: 048
     Dates: start: 20091124, end: 20100115
  5. PAXIL [Concomitant]
     Dosage: 40 MG
     Route: 048
     Dates: start: 20100116, end: 20110925
  6. PAXIL [Concomitant]
     Dosage: 20 MG
     Route: 048
     Dates: start: 20110926, end: 20120105
  7. PAXIL [Concomitant]
     Dosage: 10 MG
     Route: 048
     Dates: start: 20120106, end: 20120119
  8. ANAFRANIL [Concomitant]
     Indication: DEPRESSION
     Dosage: 60 MG
     Route: 048
     Dates: start: 20120120, end: 20120202
  9. ANAFRANIL [Concomitant]
     Dosage: 30 MG
     Route: 048
     Dates: start: 20120203, end: 20120216

REACTIONS (1)
  - Activation syndrome [Recovered/Resolved]
